FAERS Safety Report 15838149 (Version 2)
Quarter: 2019Q1

REPORT INFORMATION
  Report Type: Spontaneous
  Country: ES (occurrence: ES)
  Receive Date: 20190117
  Receipt Date: 20190124
  Transmission Date: 20190417
  Serious: Yes (Hospitalization)
  Sender: FDA-Public Use
  Company Number: ES-PFIZER INC-2019018548

PATIENT
  Age: 81 Year
  Sex: Female

DRUGS (15)
  1. TROMALYT [Concomitant]
     Active Substance: ASPIRIN
     Dosage: 150 MG, 1X/DAY (DAILY DOSE: 150 MILLIGRAM)
  2. OMEPRAZOLE. [Concomitant]
     Active Substance: OMEPRAZOLE
     Dosage: 1 DF, 1X/DAY (DAILY DOSE: 1 DOSAGE FORM)
  3. ACFOL [Concomitant]
     Active Substance: FOLIC ACID
     Dosage: 5 MG, MONTHLY
  4. FLUCONAZOLE. [Suspect]
     Active Substance: FLUCONAZOLE
     Dosage: 100 MG, 1X/DAY (DAILY DOSE: 100 MILLIGRAM)
  5. METOJECT [Suspect]
     Active Substance: METHOTREXATE SODIUM
     Dosage: 15 MG, WEEKLY (4 ADMINISTRATIONS)
     Dates: start: 201809, end: 201809
  6. PREDNISONE. [Concomitant]
     Active Substance: PREDNISONE
     Dosage: 5 MG, UNK
  7. HIDROFEROL [Concomitant]
     Active Substance: CALCIFEDIOL
     Dosage: UNK
  8. LOPID [Concomitant]
     Active Substance: GEMFIBROZIL
     Dosage: 1 DF, 1X/DAY (DAILY DOSE: 1 DOSAGE FORM)
  9. MONOPROST [Concomitant]
     Active Substance: LATANOPROST
     Dosage: 1 GTT, 1X/DAY (AT NIGHT DAILY DOSE: 1 DROP)
  10. ARTEOPTIC [Concomitant]
     Active Substance: CARTEOLOL HYDROCHLORIDE
     Dosage: 2 GTT, 1X/DAY (DAILY DOSE: 2 DROP)
  11. LOSARTAN. [Concomitant]
     Active Substance: LOSARTAN
     Dosage: 1 DF, 1X/DAY (DAILY DOSE: 1 DOSAGE FORM)
  12. ATORVASTATIN [Concomitant]
     Active Substance: ATORVASTATIN
     Indication: BLOOD CHOLESTEROL ABNORMAL
     Dosage: 20 MG, 1X/DAY (DAILY DOSE: 20 MILLIGRAM)
  13. TARDYFERON [Concomitant]
     Active Substance: FERROUS SULFATE
     Dosage: 80 MG, 1X/DAY (DAILY DOSE: 80 MILLIGRAM)
  14. METFORMIN [Concomitant]
     Active Substance: METFORMIN HYDROCHLORIDE
     Indication: BLOOD GLUCOSE ABNORMAL
     Dosage: 1 DF, 1X/DAY
  15. NATECAL [Concomitant]
     Active Substance: CALCIUM CARBONATE\CHOLECALCIFEROL
     Dosage: 2 DF, 1X/DAY (DAILY DOSE: 2 DOSAGE FORM)

REACTIONS (2)
  - Stomatitis [Recovered/Resolved]
  - Alopecia [Not Recovered/Not Resolved]

NARRATIVE: CASE EVENT DATE: 2018
